FAERS Safety Report 4561630-X (Version None)
Quarter: 2005Q1

REPORT INFORMATION
  Report Type: 
  Country: None (occurrence: None)
  Receive Date: 20050126
  Receipt Date: 20041221
  Transmission Date: 20050727
  Serious: Yes (Other)
  Sender: FDA-Public Use
  Company Number: FR-GLAXOSMITHKLINE-B0363241A

PATIENT
  Age: 48 Year
  Sex: Male
  Weight: 82 kg

DRUGS (3)
  1. AVANDAMET [Suspect]
     Dosage: 1TABS TWICE PER DAY
     Route: 048
     Dates: start: 20041202, end: 20041210
  2. KERLONE [Concomitant]
     Route: 048
  3. ENALAPRIL [Concomitant]
     Route: 048

REACTIONS (1)
  - PRURITUS [None]
